FAERS Safety Report 4488884-2 (Version None)
Quarter: 2004Q3

REPORT INFORMATION
  Report Type: 
  Country: None (occurrence: None)
  Receive Date: 20040921
  Receipt Date: 20040116
  Transmission Date: 20050211
  Serious: Yes (Hospitalization)
  Sender: FDA-Public Use
  Company Number: 163-20785-04010442

PATIENT
  Age: 75 Year
  Sex: Male
  Weight: 78.6 kg

DRUGS (33)
  1. THALOMID [Suspect]
     Indication: ACUTE MYELOID LEUKAEMIA
     Dosage: 100 MG, DAILY, ORAL; 200 MG, DAILY, ORAL
     Route: 048
     Dates: start: 20030911, end: 20030917
  2. THALOMID [Suspect]
     Indication: ACUTE MYELOID LEUKAEMIA
     Dosage: 100 MG, DAILY, ORAL; 200 MG, DAILY, ORAL
     Route: 048
     Dates: start: 20030918, end: 20030923
  3. FLUDARABINE PHOSPHATE [Suspect]
     Indication: ACUTE MYELOID LEUKAEMIA
     Dosage: 30 MG, QD, INTRAVENOUS
     Route: 042
     Dates: start: 20030910, end: 20030914
  4. CARBOPLATIN [Suspect]
     Indication: ACUTE MYELOID LEUKAEMIA
     Dosage: 200 MG, QD, INTRAVENOUS
     Route: 042
     Dates: start: 20030910, end: 20030914
  5. TOPOTECAN (TOPOTECAN) (UNKNOWN) [Suspect]
     Indication: ACUTE MYELOID LEUKAEMIA
     Dosage: 1.7 MG, QD, INTRAVENOUS
     Route: 042
     Dates: start: 20030915, end: 20030917
  6. ACETAMINOPHEN [Concomitant]
  7. ALBUMIN (HUMAN) [Concomitant]
  8. ALBUTEROL [Concomitant]
  9. AZTREONAM (AZTREONAM) [Concomitant]
  10. CASPOFUNGIN (CASPOFUNGIN) [Concomitant]
  11. CIPROFLOXACIN [Concomitant]
  12. CLINDAMYCIN (CLINDAMYCIN) [Concomitant]
  13. DECADRON [Concomitant]
  14. DIPHENHYDRAMINE HCL [Concomitant]
  15. CLOTRIMAZOLE TROCHE (CLOTRIMAZOLE) [Concomitant]
  16. AMBISOME [Concomitant]
  17. DEMEROL [Concomitant]
  18. MEROPENEM (MEROPENEM) [Concomitant]
  19. METOPROLOL TARTRATE [Concomitant]
  20. MIRTAZAPINE (MIERTAZAPINE) [Concomitant]
  21. PHYTONADIONE [Concomitant]
  22. POTASSIUM CHLORIDE [Concomitant]
  23. RANITIDINE [Concomitant]
  24. GM-CSF (GRANULOCYTE MACROPHAGE COLONY STIM FACTOR) [Concomitant]
  25. PLATELET TRANSFUSION (PLATELETS, HUMAN BLOOD) [Concomitant]
  26. RED BLOOD CELL TRANSFUSIONS (RED BLOOD CELLS) [Concomitant]
  27. VACOMYCIN (VANCOMYCIN) [Concomitant]
  28. VORICONAZOLE (VORINONAZOLE) [Concomitant]
  29. CALCIUM CARBONATE (CALCIUM CARBONATE) [Concomitant]
  30. DIGOXIN [Concomitant]
  31. DILTIAZEM [Concomitant]
  32. FILGRASTIM (FILGRASTIM) [Concomitant]
  33. LANSOPRAZOLE [Concomitant]

REACTIONS (6)
  - ALANINE AMINOTRANSFERASE INCREASED [None]
  - ASPARTATE AMINOTRANSFERASE INCREASED [None]
  - BLOOD ALKALINE PHOSPHATASE INCREASED [None]
  - BLOOD BILIRUBIN INCREASED [None]
  - DEPRESSED LEVEL OF CONSCIOUSNESS [None]
  - GAMMA-GLUTAMYLTRANSFERASE INCREASED [None]
